FAERS Safety Report 7465400-4 (Version None)
Quarter: 2011Q2

REPORT INFORMATION
  Report Type: 
  Country: None (occurrence: None)
  Receive Date: 20110509
  Receipt Date: 20100322
  Transmission Date: 20111010
  Serious: No
  Sender: FDA-Public Use
  Company Number: US-BAUSCH-2010BL001584

PATIENT
  Age: 73 Year
  Sex: Female

DRUGS (3)
  1. RESTASIS [Concomitant]
  2. LOTEMAX [Suspect]
     Indication: DRY EYE
     Route: 047
     Dates: start: 20100226, end: 20100305
  3. LOTEMAX [Suspect]
     Indication: OFF LABEL USE
     Route: 047
     Dates: start: 20100226, end: 20100305

REACTIONS (5)
  - FACIAL PAIN [None]
  - EYE IRRITATION [None]
  - EYE PAIN [None]
  - EAR PAIN [None]
  - FOREIGN BODY SENSATION IN EYES [None]
